FAERS Safety Report 5134341-X (Version None)
Quarter: 2006Q4

REPORT INFORMATION
  Report Type: 
  Country: None (occurrence: None)
  Receive Date: 20060831
  Receipt Date: 20060207
  Transmission Date: 20070319
  Serious: Yes (Hospitalization)
  Sender: FDA-Public Use
  Company Number: 250672

PATIENT
  Age: 65 Year
  Sex: Male
  Weight: 83.9 kg

DRUGS (8)
  1. NOVOLIN N [Suspect]
     Indication: DIABETES MELLITUS INSULIN-DEPENDENT
     Dosage: 20 IU, QD, SUBCUTANEOUS
     Route: 058
     Dates: end: 20060113
  2. NOVOLIN R [Suspect]
     Indication: DIABETES MELLITUS INSULIN-DEPENDENT
     Dosage: 50 IU, QD, SUBCUTANEOUS
     Route: 058
  3. LANTUS [Concomitant]
  4. PRAVACHOL [Concomitant]
  5. COZAAR [Concomitant]
  6. FUROSEMIDE [Concomitant]
  7. SYNTHROID [Concomitant]
  8. ASPIRIN [Concomitant]

REACTIONS (1)
  - BLOOD GLUCOSE DECREASED [None]
